FAERS Safety Report 13420424 (Version 2)
Quarter: 2017Q2

REPORT INFORMATION
  Report Type: Report from Study
  Country: HU (occurrence: HU)
  Receive Date: 20170408
  Receipt Date: 20170412
  Transmission Date: 20170830
  Serious: Yes (Other)
  Sender: FDA-Public Use
  Company Number: HU-AMGEN-HUNNI2017053051

PATIENT
  Age: 57 Year
  Sex: Female
  Weight: 51.5 kg

DRUGS (4)
  1. FOLSAV [Concomitant]
     Indication: SUPPLEMENTATION THERAPY
     Dosage: DAILY 1X1, STARTED 10 YEARS AGO
  2. ETANERCEPT [Suspect]
     Active Substance: ETANERCEPT
     Indication: RHEUMATOID ARTHRITIS
     Dosage: UNK, QWK
     Route: 065
     Dates: start: 201610, end: 201701
  3. MEDROL [Concomitant]
     Active Substance: METHYLPREDNISOLONE
     Indication: RHEUMATOID ARTHRITIS
     Dosage: DAILY 2X1, STARTED 10 YEARS AGO
  4. TREXAN [Concomitant]
     Active Substance: METHOTREXATE SODIUM
     Indication: RHEUMATOID ARTHRITIS
     Dosage: WEEKLY 1X 3X2 TABLET
     Dates: start: 2008

REACTIONS (3)
  - Rheumatoid lung [Unknown]
  - Pneumonia [Not Recovered/Not Resolved]
  - Pyrexia [Not Recovered/Not Resolved]

NARRATIVE: CASE EVENT DATE: 201701
